FAERS Safety Report 15035253 (Version 3)
Quarter: 2018Q4

REPORT INFORMATION
  Report Type: Spontaneous
  Country: US (occurrence: US)
  Receive Date: 20180620
  Receipt Date: 20181102
  Transmission Date: 20190204
  Serious: No
  Sender: FDA-Public Use
  Company Number: PHEH2018US024517

PATIENT
  Age: 58 Year
  Sex: Female

DRUGS (3)
  1. AFINITOR [Suspect]
     Active Substance: EVEROLIMUS
     Indication: RENAL CANCER
     Dosage: 10 MG, QD
     Route: 048
  2. LENVATINIB [Suspect]
     Active Substance: LENVATINIB
     Indication: RENAL CANCER
     Dosage: 10 MG, QD
     Route: 048
  3. AFINITOR [Suspect]
     Active Substance: EVEROLIMUS
     Dosage: 5 UNK, UNK
     Route: 048

REACTIONS (12)
  - Furuncle [Unknown]
  - Mood swings [Unknown]
  - Dizziness postural [Unknown]
  - Arthralgia [Unknown]
  - Decreased appetite [Unknown]
  - Constipation [Unknown]
  - Aphasia [Unknown]
  - Productive cough [Unknown]
  - Headache [Unknown]
  - Fatigue [Recovering/Resolving]
  - Abdominal discomfort [Unknown]
  - Nausea [Unknown]

NARRATIVE: CASE EVENT DATE: 20180621
